FAERS Safety Report 9558568 (Version 4)
Quarter: 2013Q4

REPORT INFORMATION
  Report Type: Report from Study
  Country: JP (occurrence: JP)
  Receive Date: 20130926
  Receipt Date: 20131110
  Transmission Date: 20140711
  Serious: Yes (Death)
  Sender: FDA-Public Use
  Company Number: PHHY2013JP107316

PATIENT
  Age: 39 Year
  Sex: Male

DRUGS (7)
  1. FTY 720 [Suspect]
     Indication: MULTIPLE SCLEROSIS
     Dosage: 0.5 MG, DAILY
     Route: 048
     Dates: start: 20120827, end: 20130615
  2. LEXAPRO [Concomitant]
     Indication: DEPRESSIVE SYMPTOM
     Dosage: 10 MG, UNK
     Route: 048
  3. TOFRANIL [Concomitant]
     Indication: DEPRESSIVE SYMPTOM
  4. DEPAKENE [Concomitant]
     Indication: DEPRESSIVE SYMPTOM
     Route: 048
  5. GRANDAXIN [Concomitant]
     Dosage: 150 MG, UNK
     Route: 048
  6. REFLEX                             /00738201/ [Concomitant]
     Dosage: 45 MG, UNK
     Route: 048
  7. LENDORMIN [Concomitant]
     Dosage: 0.25 MG, UNK
     Route: 048

REACTIONS (1)
  - Completed suicide [Fatal]
